FAERS Safety Report 9255344 (Version 2)
Quarter: 2013Q2

REPORT INFORMATION
  Report Type: Spontaneous
  Country: DK (occurrence: AU)
  Receive Date: 20130425
  Receipt Date: 20130513
  Transmission Date: 20140414
  Serious: Yes (Life-Threatening)
  Sender: FDA-Public Use
  Company Number: AU-FRI-1000044678

PATIENT
  Age: 29 Year
  Sex: Female

DRUGS (5)
  1. CITALOPRAM [Suspect]
     Indication: ANTIDEPRESSANT THERAPY
     Dosage: 10-40 MG DAILY
  2. QUETIAPINE [Suspect]
  3. ALEPAM [Concomitant]
  4. MAXOLON [Concomitant]
     Dosage: 2.5 MG
  5. ONDANSETRON [Concomitant]
     Dosage: 1 MG

REACTIONS (3)
  - Hyperemesis gravidarum [Recovered/Resolved]
  - Wound haemorrhage [Not Recovered/Not Resolved]
  - Pregnancy [Recovered/Resolved]
